FAERS Safety Report 6971797-1 (Version None)
Quarter: 2010Q3

REPORT INFORMATION
  Report Type: 
  Country: None (occurrence: None)
  Receive Date: 20100908
  Receipt Date: 20100907
  Transmission Date: 20110219
  Serious: Yes (Other)
  Sender: FDA-Public Use
  Company Number: ES-MERCK-1009ESP00007

PATIENT
  Age: 34 Year
  Sex: Female

DRUGS (6)
  1. CANCIDAS [Suspect]
     Indication: NEUTROPENIA
     Route: 065
     Dates: start: 20100713, end: 20100805
  2. ACYCLOVIR [Suspect]
     Indication: BONE MARROW TRANSPLANT
     Route: 065
     Dates: start: 20100713, end: 20100803
  3. CYCLOSPORINE [Suspect]
     Indication: BONE MARROW TRANSPLANT
     Route: 065
     Dates: start: 20100713
  4. AMIKACIN [Suspect]
     Indication: NEUTROPENIA
     Route: 042
     Dates: start: 20100713, end: 20100729
  5. MEROPENEM [Suspect]
     Indication: RESPIRATORY TRACT INFECTION
     Route: 042
     Dates: start: 20100719, end: 20100731
  6. ZYVOX [Suspect]
     Indication: RESPIRATORY TRACT INFECTION
     Route: 042
     Dates: start: 20100719, end: 20100726

REACTIONS (2)
  - HEPATITIS [None]
  - HYPERBILIRUBINAEMIA [None]
